FAERS Safety Report 9938713 (Version 1)
Quarter: 2014Q1

REPORT INFORMATION
  Report Type: Spontaneous
  Country: CH (occurrence: CH)
  Receive Date: 20140303
  Receipt Date: 20140303
  Transmission Date: 20141002
  Serious: Yes (Death, Other)
  Sender: FDA-Public Use
  Company Number: CH-009507513-1402CHE012191

PATIENT
  Age: 53 Year
  Sex: Female

DRUGS (10)
  1. INVANZ [Suspect]
     Indication: PNEUMONIA
     Dosage: 1 G, BID
     Route: 040
     Dates: start: 20131201, end: 20131210
  2. AUGMENTIN [Suspect]
     Indication: MULTIPLE INJURIES
     Dosage: 2.2 G, TID
     Route: 042
     Dates: start: 20131116, end: 20131128
  3. LASIX (FUROSEMIDE) [Suspect]
     Indication: CARDIOVASCULAR DISORDER
     Dosage: 1 DF, QD
     Dates: start: 201311, end: 2013
  4. HALDOL [Suspect]
     Indication: DELIRIUM
     Dosage: 1 DF, QD
     Dates: start: 201311, end: 201312
  5. SEROQUEL [Suspect]
     Indication: DELIRIUM
     Dosage: 1 DF, QD
     Dates: start: 201311, end: 201312
  6. FRAGMIN [Suspect]
     Indication: THROMBOSIS PROPHYLAXIS
     Dosage: 5000 IU, QD
     Route: 058
     Dates: start: 20131116, end: 2013
  7. MORPHINE SULFATE [Concomitant]
  8. NOVALGIN (DIPYRONE) [Concomitant]
  9. TEMESTA [Concomitant]
  10. DORMICUM (MIDAZOLAM) [Concomitant]

REACTIONS (9)
  - Eosinophilic myocarditis [Fatal]
  - Cardiac arrest [Fatal]
  - Hypoxic-ischaemic encephalopathy [Fatal]
  - Brain oedema [Fatal]
  - Drug reaction with eosinophilia and systemic symptoms [Fatal]
  - Eosinophilic pneumonia [Not Recovered/Not Resolved]
  - Alveolitis [Not Recovered/Not Resolved]
  - Allergic hepatitis [Not Recovered/Not Resolved]
  - Bone marrow eosinophilic leukocyte count increased [Not Recovered/Not Resolved]
